FAERS Safety Report 8563783-5 (Version None)
Quarter: 2012Q3

REPORT INFORMATION
  Report Type: 
  Country: None (occurrence: None)
  Receive Date: 20120803
  Receipt Date: 20110610
  Transmission Date: 20120928
  Serious: Yes (Hospitalization, Other)
  Sender: FDA-Public Use
  Company Number: US-BAYER-200942465NA

PATIENT
  Age: 26 Year
  Sex: Female
  Weight: 55 kg

DRUGS (18)
  1. NITROFURANTOIN [Concomitant]
     Dosage: 100 MG (DAILY DOSE), ,
     Dates: start: 20061204
  2. ADDERALL XR 10 [Concomitant]
     Dosage: 30 MG (DAILY DOSE), ,
     Dates: start: 20070912
  3. LOVENOX [Concomitant]
     Indication: PULMONARY EMBOLISM
     Dates: end: 20061129
  4. NITROFURANTOIN [Concomitant]
     Dosage: 100 MG (DAILY DOSE), ,
     Dates: start: 20061204
  5. UNCODEABLE ^UNCLASSIFIABLE^ [Concomitant]
     Route: 065
  6. ADDERALL 5 [Concomitant]
  7. MIRENA [Concomitant]
     Indication: CONTRACEPTION
  8. LAMICTAL [Concomitant]
     Indication: PRODUCT USED FOR UNKNOWN INDICATION
     Route: 065
  9. AMPHETAMINE SULFATE [Concomitant]
     Dosage: 20 MG (DAILY DOSE), ,
     Dates: start: 20040715, end: 20070808
  10. LAMOTRIGINE [Concomitant]
     Indication: ORTHOSTATIC INTOLERANCE
     Dosage: 200 MG (DAILY DOSE), ,
     Dates: start: 20060901
  11. RISPERDAL [Concomitant]
     Route: 065
  12. YASMIN [Suspect]
     Indication: ENDOMETRIOSIS
     Route: 048
     Dates: start: 20030327, end: 20061106
  13. VALIUM [Concomitant]
  14. DIAZEPAM [Concomitant]
     Dosage: UNK
     Dates: start: 20050218, end: 20090911
  15. LORAZEPAM [Concomitant]
     Dosage: 2 MG (DAILY DOSE), ,
     Dates: start: 20061009
  16. AMPHETAMINE SULFATE [Concomitant]
     Dosage: 20 MG (DAILY DOSE), ,
     Dates: start: 20040715, end: 20070808
  17. CARTIA XT [Concomitant]
     Dates: start: 20061219
  18. AMBIEN [Concomitant]
     Route: 065

REACTIONS (6)
  - DIZZINESS [None]
  - SYNCOPE [None]
  - FALL [None]
  - BACK PAIN [None]
  - CHEST PAIN [None]
  - PULMONARY EMBOLISM [None]
